FAERS Safety Report 16934943 (Version 2)
Quarter: 2020Q1

REPORT INFORMATION
  Report Type: Spontaneous
  Country: US (occurrence: US)
  Receive Date: 20191018
  Receipt Date: 20200110
  Transmission Date: 20200409
  Serious: No
  Sender: FDA-Public Use
  Company Number: US-PFIZER INC-2018517516

PATIENT
  Age: 71 Year
  Sex: Female
  Weight: 69.84 kg

DRUGS (4)
  1. REVATIO [Suspect]
     Active Substance: SILDENAFIL CITRATE
     Indication: PULMONARY HYPERTENSION
     Dosage: 60 MG, 3X/DAY (3 TABLETS 3 TIMES A DAY, THREE IN THE MORNING, THREE AT NOON, AND THREE AT NIGHT)
     Route: 048
  2. REVATIO [Suspect]
     Active Substance: SILDENAFIL CITRATE
     Dosage: 80 MG, 3X/DAY
     Route: 048
     Dates: start: 201908
  3. REVATIO [Suspect]
     Active Substance: SILDENAFIL CITRATE
     Dosage: 80 MG, 3X/DAY (FOUR TABLETS)
     Route: 048
  4. REVATIO [Suspect]
     Active Substance: SILDENAFIL CITRATE
     Dosage: 60 MG, 4X/DAY

REACTIONS (6)
  - Body height decreased [Unknown]
  - Laryngitis [Unknown]
  - Off label use [Unknown]
  - Intentional overdose [Unknown]
  - Product use issue [Unknown]
  - Prescribed overdose [Unknown]

NARRATIVE: CASE EVENT DATE: 201908
